FAERS Safety Report 5112870-2 (Version None)
Quarter: 2006Q3

REPORT INFORMATION
  Report Type: 
  Country: None (occurrence: None)
  Receive Date: 20060922
  Receipt Date: 20021126
  Transmission Date: 20061208
  Serious: Yes (Hospitalization)
  Sender: FDA-Public Use
  Company Number: FR-GILEAD-2002-05071

PATIENT
  Age: 36 Year
  Sex: Male
  Weight: 40 kg

DRUGS (7)
  1. VIREAD [Suspect]
     Indication: HIV INFECTION
     Route: 048
     Dates: start: 20020601, end: 20021014
  2. VIDEX [Suspect]
     Indication: HIV INFECTION
     Route: 048
     Dates: start: 20020601, end: 20021014
  3. NORVIR [Suspect]
     Indication: HIV INFECTION
     Route: 048
     Dates: start: 20020601, end: 20021014
  4. EPIVIR [Concomitant]
     Indication: HIV INFECTION
     Route: 048
  5. VIRAMUNE [Concomitant]
     Indication: HIV INFECTION
     Route: 048
     Dates: start: 20020904
  6. KALETRA [Concomitant]
     Indication: HIV INFECTION
     Route: 048
  7. CELLTOP [Concomitant]
     Indication: CASTLEMAN'S DISEASE

REACTIONS (5)
  - DRUG TOXICITY [None]
  - FANCONI SYNDROME ACQUIRED [None]
  - POLYDIPSIA [None]
  - POLYURIA [None]
  - RENAL TUBULAR DISORDER [None]
